FAERS Safety Report 14128310 (Version 1)
Quarter: 2017Q4

REPORT INFORMATION
  Report Type: Report from Study
  Country: None (occurrence: US)
  Receive Date: 20171026
  Receipt Date: 20171026
  Transmission Date: 20180321
  Serious: Yes (Other)
  Sender: FDA-Public Use
  Company Number: US-ABBVIE-17K-163-2136574-00

PATIENT
  Sex: Female
  Weight: 50.39 kg

DRUGS (1)
  1. HUMIRA [Suspect]
     Active Substance: ADALIMUMAB
     Indication: CROHN^S DISEASE
     Route: 058
     Dates: start: 2014

REACTIONS (8)
  - Anxiety [Not Recovered/Not Resolved]
  - Gastrointestinal infection [Unknown]
  - Intestinal stenosis [Recovered/Resolved]
  - Ovarian adhesion [Recovered/Resolved]
  - Weight decreased [Recovering/Resolving]
  - Abdominal adhesions [Recovered/Resolved]
  - Decreased appetite [Recovering/Resolving]
  - Abdominal distension [Recovering/Resolving]

NARRATIVE: CASE EVENT DATE: 2017
